FAERS Safety Report 17591281 (Version 1)
Quarter: 2020Q1

REPORT INFORMATION
  Report Type: Spontaneous
  Country: JP (occurrence: CN)
  Receive Date: 20200327
  Receipt Date: 20200327
  Transmission Date: 20200409
  Serious: Yes (Hospitalization)
  Sender: FDA-Public Use
  Company Number: JP-ROCHE-2572745

PATIENT
  Age: 46 Year
  Sex: Male

DRUGS (2)
  1. TAMIFLU [Suspect]
     Active Substance: OSELTAMIVIR PHOSPHATE
     Indication: PRODUCT USED FOR UNKNOWN INDICATION
     Route: 048
     Dates: start: 20200115
  2. CEFDINIR. [Concomitant]
     Active Substance: CEFDINIR
     Dosage: DOSAGE IS UNCERTAIN.
     Route: 065
     Dates: start: 20200115

REACTIONS (1)
  - Corona virus infection [Unknown]

NARRATIVE: CASE EVENT DATE: 20200124
